FAERS Safety Report 4360691-0 (Version None)
Quarter: 2004Q2

REPORT INFORMATION
  Report Type: 
  Country: None (occurrence: None)
  Receive Date: 20040514
  Receipt Date: 20040506
  Transmission Date: 20050107
  Serious: Yes (Death, Life-Threatening)
  Sender: FDA-Public Use
  Company Number: 2004207481FR

PATIENT
  Age: 62 Year
  Sex: Male
  Weight: 70 kg

DRUGS (8)
  1. CYTARABINE [Suspect]
     Indication: ACUTE MYELOID LEUKAEMIA
     Dosage: 100 MG/M2, IV
     Route: 042
     Dates: start: 20040127, end: 20040201
  2. IDARUBICIN HCL [Suspect]
     Indication: ACUTE MYELOID LEUKAEMIA
     Dosage: 8 MG/M2, SINGLE, IV
     Route: 042
     Dates: start: 20040127, end: 20040131
  3. PRIMPERAN TAB [Suspect]
     Indication: PROPHYLAXIS OF NAUSEA AND VOMITING
     Dosage: 1 VIAL/8 HOURS MAX, IV
     Route: 042
     Dates: start: 20040127, end: 20040130
  4. BELUSTINE (LOMUSTINE) [Suspect]
     Indication: ACUTE MYELOID LEUKAEMIA
     Dosage: 200 MG/M2, ORAL
     Route: 048
     Dates: start: 20040127, end: 20040127
  5. ONDANSETRON HYDROCHLORIDE [Suspect]
     Indication: VOMITING
     Dosage: 2 MG/ML VIAL/12 HOURS, IV
     Route: 042
     Dates: start: 20040126, end: 20040202
  6. TENORDATE [Concomitant]
  7. ACUPAN [Concomitant]
  8. LASIX [Concomitant]

REACTIONS (1)
  - HYPERBILIRUBINAEMIA [None]
